FAERS Safety Report 16007255 (Version 1)
Quarter: 2019Q1

REPORT INFORMATION
  Report Type: Spontaneous
  Country: FR (occurrence: FR)
  Receive Date: 20190226
  Receipt Date: 20190226
  Transmission Date: 20190418
  Serious: Yes (Other)
  Sender: FDA-Public Use
  Company Number: FR-ACELRX PHARMACEUTICALS, INC-ACEL20190122

PATIENT
  Sex: Female
  Weight: 102 kg

DRUGS (16)
  1. SUFENTANIL [Suspect]
     Active Substance: SUFENTANIL
     Indication: TUMOUR EXCISION
     Dosage: UNKNOWN
     Route: 065
     Dates: start: 20180924, end: 20180924
  2. MORPHINE [Suspect]
     Active Substance: MORPHINE
     Indication: TUMOUR EXCISION
     Dosage: UNKNOWN
     Route: 042
     Dates: start: 20180924, end: 20180924
  3. NEFOPAM HYDROCHLORIDE [Suspect]
     Active Substance: NEFOPAM HYDROCHLORIDE
     Indication: TUMOUR EXCISION
     Dosage: UNKNOWN
     Route: 042
     Dates: start: 20180924, end: 20180924
  4. DROPERIDOL. [Suspect]
     Active Substance: DROPERIDOL
     Indication: TUMOUR EXCISION
     Dosage: UNKNOWN
     Route: 042
     Dates: start: 20180924, end: 20180924
  5. LETROZOLE. [Suspect]
     Active Substance: LETROZOLE
     Indication: BREAST CANCER METASTATIC
     Dosage: 1 DF
     Route: 048
     Dates: start: 201801, end: 20181106
  6. HERCEPTIN [Suspect]
     Active Substance: TRASTUZUMAB
     Indication: BREAST CANCER METASTATIC
     Dosage: 600 MG
     Route: 058
     Dates: start: 201707, end: 20181106
  7. PERJETA [Suspect]
     Active Substance: PERTUZUMAB
     Indication: BREAST CANCER METASTATIC
     Dosage: 420 MG
     Route: 042
     Dates: start: 201707, end: 20181106
  8. LIDOCAINE. [Suspect]
     Active Substance: LIDOCAINE
     Indication: TUMOUR EXCISION
     Dosage: UNKNOWN
     Route: 065
     Dates: start: 20180924, end: 20180924
  9. ENANTONE LP [Suspect]
     Active Substance: LEUPROLIDE ACETATE
     Indication: BREAST CANCER METASTATIC
     Dosage: UNKNOWN
     Route: 065
     Dates: start: 201707, end: 201809
  10. CISATRACURIUM. [Suspect]
     Active Substance: CISATRACURIUM
     Indication: TUMOUR EXCISION
     Dosage: UNKNOWN
     Route: 042
     Dates: start: 20180924, end: 20180924
  11. ROPIVACAINE HYDROCHLORIDE. [Suspect]
     Active Substance: ROPIVACAINE HYDROCHLORIDE
     Indication: LOCAL ANAESTHESIA
     Dosage: UNKNOWN
     Route: 065
     Dates: start: 20180924, end: 20180924
  12. DEXAMETHASONE. [Suspect]
     Active Substance: DEXAMETHASONE
     Indication: TUMOUR EXCISION
     Dosage: UNKNOWN
     Route: 065
     Dates: start: 20180924, end: 20180924
  13. PROPOFOL. [Suspect]
     Active Substance: PROPOFOL
     Indication: GENERAL ANAESTHESIA
     Dosage: UNKNOWN
     Route: 042
     Dates: start: 20180924, end: 20180924
  14. KETOPROFENE [Suspect]
     Active Substance: KETOPROFEN
     Indication: TUMOUR EXCISION
     Dosage: UNKNOWN
     Route: 042
     Dates: start: 20180924, end: 20180924
  15. PARACETAMOL [Suspect]
     Active Substance: ACETAMINOPHEN
     Indication: TUMOUR EXCISION
     Dosage: UNKNOWN
     Route: 042
     Dates: start: 20180924, end: 20180924
  16. LYTOS [Suspect]
     Active Substance: CLODRONATE DISODIUM
     Indication: METASTASES TO BONE
     Dosage: 2 DF
     Route: 048

REACTIONS (2)
  - Oligohydramnios [Not Recovered/Not Resolved]
  - Maternal exposure during pregnancy [Unknown]

NARRATIVE: CASE EVENT DATE: 201811
